FAERS Safety Report 12337339 (Version 1)
Quarter: 2016Q2

REPORT INFORMATION
  Report Type: Spontaneous
  Country: US (occurrence: None)
  Receive Date: 20160504
  Receipt Date: 20160504
  Transmission Date: 20160815
  Serious: No
  Sender: FDA-Public Use
  Company Number: None

PATIENT
  Age: 34 Year
  Sex: Female

DRUGS (7)
  1. DIFLUCAN [Concomitant]
     Active Substance: FLUCONAZOLE
  2. OLOPATADINE [Concomitant]
     Active Substance: OLOPATADINE
  3. EPIPEN [Concomitant]
     Active Substance: EPINEPHRINE
  4. FROVATRIPTAN. [Concomitant]
     Active Substance: FROVATRIPTAN
  5. PREDNISONE. [Concomitant]
     Active Substance: PREDNISONE
  6. VENTOLIN [Concomitant]
     Active Substance: ALBUTEROL SULFATE
  7. GLATOPA [Suspect]
     Active Substance: GLATIRAMER ACETATE
     Indication: MULTIPLE SCLEROSIS
     Route: 058
     Dates: end: 201604

REACTIONS (1)
  - Headache [None]

NARRATIVE: CASE EVENT DATE: 201604
